FAERS Safety Report 9247486 (Version 1)
Quarter: 2013Q2

REPORT INFORMATION
  Report Type: Spontaneous
  Country: US (occurrence: US)
  Receive Date: 20130423
  Receipt Date: 20130423
  Transmission Date: 20140414
  Serious: Yes (Other)
  Sender: FDA-Public Use
  Company Number: US-ASTELLAS-2013US004160

PATIENT
  Sex: 0

DRUGS (2)
  1. AMBISOME [Suspect]
     Indication: PRODUCT USED FOR UNKNOWN INDICATION
     Dosage: UNK
     Route: 042
  2. AMBISOME [Suspect]
     Dosage: 12 TO 18 HOUR INFUSION
     Route: 042

REACTIONS (2)
  - Inappropriate schedule of drug administration [Unknown]
  - Infusion related reaction [Unknown]
